FAERS Safety Report 8893952 (Version 1)
Quarter: 2012Q4

REPORT INFORMATION
  Report Type: 
  Country: CA (occurrence: CA)
  Receive Date: 20121107
  Receipt Date: 20121107
  Transmission Date: 20130627
  Serious: Yes (Other)
  Sender: FDA-Public Use
  Company Number: PHMT2005CA00750

PATIENT
  Sex: Male

DRUGS (10)
  1. SANDOSTATIN LAR [Suspect]
     Indication: CARCINOID SYNDROME
     Dosage: 20 mg, QMO
     Dates: start: 20050915
  2. CHEMOTHERAPEUTICS,OTHER [Concomitant]
     Route: 065
  3. COUMADIN [Concomitant]
     Route: 065
  4. DOMPERIDONE [Concomitant]
     Route: 065
  5. FLOMAX [Concomitant]
     Route: 065
  6. FLOVENT [Concomitant]
     Route: 065
  7. LIPITOR [Concomitant]
     Route: 065
  8. OXEZE [Concomitant]
     Route: 065
  9. PARIET [Concomitant]
     Route: 065
  10. PROSCAR [Concomitant]
     Route: 065

REACTIONS (7)
  - Stent-graft endoleak [Unknown]
  - Blood disorder [Unknown]
  - Hypotension [Unknown]
  - Flushing [Unknown]
  - Flatulence [Unknown]
  - Diarrhoea [Unknown]
  - Nausea [Unknown]
